FAERS Safety Report 18009786 (Version 2)
Quarter: 2020Q3

REPORT INFORMATION
  Report Type: Spontaneous
  Country: GB (occurrence: GB)
  Receive Date: 20200710
  Receipt Date: 20200720
  Transmission Date: 20201103
  Serious: Yes (Hospitalization)
  Sender: FDA-Public Use
  Company Number: GB-BIOMARINAP-GB-2020-131056

PATIENT
  Age: 6 Year
  Sex: Male

DRUGS (3)
  1. AMETOP [TETRACAINE] [Concomitant]
     Active Substance: TETRACAINE
     Indication: PRODUCT USED FOR UNKNOWN INDICATION
  2. NAGLAZYME [Suspect]
     Active Substance: GALSULFASE
     Indication: MUCOPOLYSACCHARIDOSIS VI
     Dosage: 15 MILLIGRAM
     Route: 042
  3. NAGLAZYME [Suspect]
     Active Substance: GALSULFASE
     Dosage: 20 MILLIGRAM
     Route: 042

REACTIONS (7)
  - Wound [Unknown]
  - Catheter site swelling [Unknown]
  - Catheter management [Recovering/Resolving]
  - Wound complication [Unknown]
  - Carpal tunnel decompression [Recovering/Resolving]
  - Catheter site bruise [Unknown]
  - Peripheral swelling [Recovering/Resolving]

NARRATIVE: CASE EVENT DATE: 202007
